FAERS Safety Report 20039261 (Version 2)
Quarter: 2021Q4

REPORT INFORMATION
  Report Type: Spontaneous
  Country: BR (occurrence: BR)
  Receive Date: 20211105
  Receipt Date: 20211118
  Transmission Date: 20220303
  Serious: Yes (Other)
  Sender: FDA-Public Use
  Company Number: BR-AMERICAN REGENT INC-2021002888

PATIENT
  Age: 35 Year
  Sex: Female

DRUGS (3)
  1. VENOFER [Suspect]
     Active Substance: IRON SUCROSE
     Indication: Anaemia
     Dosage: INJECTABLE SOLUTION 100MG/5ML (100 MG, 1 IN 1 M)
     Route: 042
     Dates: start: 2020
  2. VENOFER [Suspect]
     Active Substance: IRON SUCROSE
     Indication: Iron deficiency anaemia
  3. VENOFER [Suspect]
     Active Substance: IRON SUCROSE
     Indication: Mineral supplementation

REACTIONS (4)
  - Unevaluable event [Unknown]
  - Feeling of despair [Unknown]
  - Anxiety [Unknown]
  - Product availability issue [Unknown]

NARRATIVE: CASE EVENT DATE: 20210101
